FAERS Safety Report 19956574 (Version 1)
Quarter: 2021Q4

REPORT INFORMATION
  Report Type: Spontaneous
  Country: SG (occurrence: SG)
  Receive Date: 20211014
  Receipt Date: 20211014
  Transmission Date: 20220303
  Serious: Yes (Hospitalization)
  Sender: FDA-Public Use
  Company Number: SG-009507513-2110SGP002166

PATIENT
  Sex: Female

DRUGS (1)
  1. IVERMECTIN [Suspect]
     Active Substance: IVERMECTIN
     Dosage: UNK

REACTIONS (1)
  - Toxicity to various agents [Unknown]
